FAERS Safety Report 16999420 (Version 1)
Quarter: 2019Q4

REPORT INFORMATION
  Report Type: Spontaneous
  Country: US (occurrence: US)
  Receive Date: 20190925
  Receipt Date: 20190925
  Transmission Date: 20200122
  Serious: No
  Sender: FDA-Public Use
  Company Number: None

PATIENT

DRUGS (1)
  1. CLOZAPINE. [Suspect]
     Active Substance: CLOZAPINE
     Route: 048

REACTIONS (6)
  - Confusional state [None]
  - Therapy cessation [None]
  - Drug titration error [None]
  - Device computer issue [None]
  - Pulseless electrical activity [None]
  - Agitation [None]
